FAERS Safety Report 5262182-1 (Version None)
Quarter: 2007Q1

REPORT INFORMATION
  Report Type: 
  Country: None (occurrence: None)
  Receive Date: 20070312
  Receipt Date: 20070302
  Transmission Date: 20070707
  Serious: Yes (Other)
  Sender: FDA-Public Use
  Company Number: US-BAYER-200710524BWH

PATIENT
  Sex: Male

DRUGS (4)
  1. AVELOX [Suspect]
     Indication: PROSTATITIS
     Route: 048
  2. LEVAQUIN [Suspect]
     Indication: PROSTATITIS
     Route: 048
     Dates: start: 20060820
  3. CIPRO [Suspect]
     Indication: PROSTATITIS
     Route: 048
     Dates: start: 20061001
  4. VENTOLIN [Concomitant]
     Indication: ASTHMA

REACTIONS (24)
  - AMNESIA [None]
  - ANXIETY [None]
  - APHASIA [None]
  - CEREBROVASCULAR ACCIDENT [None]
  - DYSPHAGIA [None]
  - DYSPNOEA [None]
  - FEELING ABNORMAL [None]
  - HEPATIC LESION [None]
  - HYPOAESTHESIA [None]
  - INSOMNIA [None]
  - NIGHT BLINDNESS [None]
  - PAIN IN EXTREMITY [None]
  - PANIC ATTACK [None]
  - PARAESTHESIA [None]
  - PERIPHERAL COLDNESS [None]
  - PSYCHOTIC DISORDER DUE TO A GENERAL MEDICAL CONDITION [None]
  - PUPIL FIXED [None]
  - SKIN DISCOLOURATION [None]
  - SUICIDAL IDEATION [None]
  - TREMOR [None]
  - UNEVALUABLE EVENT [None]
  - VISION BLURRED [None]
  - VISUAL ACUITY REDUCED [None]
  - VITREOUS FLOATERS [None]
